FAERS Safety Report 15880743 (Version 1)
Quarter: 2019Q1

REPORT INFORMATION
  Report Type: Report from Study
  Country: US (occurrence: US)
  Receive Date: 20190128
  Receipt Date: 20190128
  Transmission Date: 20190417
  Serious: Yes (Hospitalization)
  Sender: FDA-Public Use
  Company Number: US-EXELIXIS-CABO-19018381

PATIENT
  Sex: Female

DRUGS (20)
  1. CABOMETYX [Suspect]
     Active Substance: CABOZANTINIB S-MALATE
     Indication: CYSTIC FIBROSIS
     Dosage: UNK
     Dates: start: 2017
  2. CABOMETYX [Suspect]
     Active Substance: CABOZANTINIB S-MALATE
     Dosage: 60 MG, QD
     Route: 048
  3. DOXYCYCLINE HYCLATE. [Concomitant]
     Active Substance: DOXYCYCLINE HYCLATE
  4. OPIUM. [Concomitant]
     Active Substance: OPIUM
  5. VITAMIN D3 [Concomitant]
     Active Substance: CHOLECALCIFEROL
  6. CABOMETYX [Suspect]
     Active Substance: CABOZANTINIB S-MALATE
     Dosage: 40 MG, MON-SAT
     Route: 048
  7. FISH OIL [Concomitant]
     Active Substance: FISH OIL
  8. VALACYCLOVIR [Concomitant]
     Active Substance: VALACYCLOVIR HYDROCHLORIDE
  9. ZINC. [Concomitant]
     Active Substance: ZINC
     Indication: RENAL CANCER
     Dosage: 60 MG, QD
     Route: 048
     Dates: start: 20171130, end: 2017
  10. LYSINE [Concomitant]
     Active Substance: LYSINE
  11. ZINC. [Concomitant]
     Active Substance: ZINC
     Dosage: 40 MG, MON.-SAT.
     Route: 048
  12. CABOMETYX [Suspect]
     Active Substance: CABOZANTINIB S-MALATE
     Indication: RENAL CANCER
     Dosage: 60 MG, QD
     Route: 048
     Dates: start: 20161130, end: 2017
  13. CABOMETYX [Suspect]
     Active Substance: CABOZANTINIB S-MALATE
     Dosage: 60 MG, QD
     Route: 048
  14. CEFPODOXIME [Concomitant]
     Active Substance: CEFPODOXIME
  15. LOMOTIL [Concomitant]
     Active Substance: ATROPINE SULFATE\DIPHENOXYLATE HYDROCHLORIDE
  16. SOLODYN [Concomitant]
     Active Substance: MINOCYCLINE HYDROCHLORIDE
  17. ZINC. [Concomitant]
     Active Substance: ZINC
     Dosage: 60 MG, QD
     Route: 048
  18. GILENYA [Concomitant]
     Active Substance: FINGOLIMOD HYDROCHLORIDE
  19. ZINC. [Concomitant]
     Active Substance: ZINC
     Indication: CYSTIC FIBROSIS
     Dosage: UNK
     Dates: start: 2017
  20. CLARAVIS [Concomitant]
     Active Substance: ISOTRETINOIN

REACTIONS (3)
  - Renal disorder [Unknown]
  - Thyroid disorder [Unknown]
  - Hypothalamo-pituitary disorder [Unknown]
